FAERS Safety Report 4765888-3 (Version None)
Quarter: 2005Q3

REPORT INFORMATION
  Report Type: 
  Country: None (occurrence: None)
  Receive Date: 20050908
  Receipt Date: 20050908
  Transmission Date: 20060218
  Serious: Yes (Life-Threatening, Hospitalization, Disabling, Other)
  Sender: FDA-Public Use
  Company Number: None

PATIENT
  Sex: Female
  Weight: 131.5431 kg

DRUGS (3)
  1. CELEXA [Suspect]
     Indication: DEPRESSION
     Dosage: PO
     Route: 048
     Dates: start: 20010615, end: 20010915
  2. NEURONTIN [Suspect]
     Indication: MAJOR DEPRESSION
     Dosage: PO
     Route: 048
     Dates: start: 20011015, end: 20030415
  3. NEURONTIN [Suspect]
     Indication: PERSONALITY DISORDER
     Dosage: PO
     Route: 048
     Dates: start: 20011015, end: 20030415

REACTIONS (16)
  - ABNORMAL BEHAVIOUR [None]
  - BIPOLAR DISORDER [None]
  - CONVERSION DISORDER [None]
  - DEPRESSION [None]
  - ECONOMIC PROBLEM [None]
  - FEELING ABNORMAL [None]
  - HALLUCINATION, AUDITORY [None]
  - MANIA [None]
  - MOOD SWINGS [None]
  - ORAL INTAKE REDUCED [None]
  - OVERDOSE [None]
  - PSYCHOTIC DISORDER [None]
  - SCAR [None]
  - SELF MUTILATION [None]
  - SUICIDAL IDEATION [None]
  - THINKING ABNORMAL [None]
